FAERS Safety Report 14581741 (Version 1)
Quarter: 2018Q1

REPORT INFORMATION
  Report Type: Spontaneous
  Country: US (occurrence: US)
  Receive Date: 20180227
  Receipt Date: 20180227
  Transmission Date: 20180509
  Serious: Yes (Hospitalization)
  Sender: FDA-Public Use
  Company Number: None

PATIENT
  Age: 68 Year
  Sex: Male
  Weight: 62.6 kg

DRUGS (1)
  1. INVESTIGATIONAL CABOZANTINIB [Suspect]
     Active Substance: CABOZANTINIB
     Indication: PAPILLARY THYROID CANCER
     Route: 048
     Dates: start: 20170504

REACTIONS (3)
  - Therapy cessation [None]
  - Drug ineffective [None]
  - Odynophagia [None]

NARRATIVE: CASE EVENT DATE: 20180223
